FAERS Safety Report 25915670 (Version 1)
Quarter: 2025Q4

REPORT INFORMATION
  Report Type: Spontaneous
  Country: US (occurrence: US)
  Receive Date: 20251013
  Receipt Date: 20251013
  Transmission Date: 20260118
  Serious: No
  Sender: AMGEN
  Company Number: US-AMGEN-USASP2025201670

PATIENT
  Age: 48 Year
  Sex: Male

DRUGS (2)
  1. VECTIBIX [Suspect]
     Active Substance: PANITUMUMAB
     Indication: Gastrointestinal cancer metastatic
     Dosage: 400 MILLIGRAM,  DOSE ORDERED: 500 MG, 1 X 400 MG AND 1 X 100 MG VIAL OF VECTIBIX
     Route: 065
  2. VECTIBIX [Suspect]
     Active Substance: PANITUMUMAB
     Dosage: 100 MILLIGRAM,  DOSE ORDERED: 500 MG, 1 X 400 MG AND 1 X 100 MG VIAL OF VECTIBIX
     Route: 065

REACTIONS (1)
  - Feeling abnormal [Unknown]

NARRATIVE: CASE EVENT DATE: 20251001
